FAERS Safety Report 6219797-3 (Version None)
Quarter: 2009Q2

REPORT INFORMATION
  Report Type: 
  Country: None (occurrence: None)
  Receive Date: 20090609
  Receipt Date: 20090601
  Transmission Date: 20091009
  Serious: Yes (Other)
  Sender: FDA-Public Use
  Company Number: B0577903A

PATIENT
  Age: 29 Year
  Sex: Male

DRUGS (2)
  1. PAROXETINE HCL [Suspect]
     Indication: ANXIETY DISORDER
     Route: 065
  2. BETA BLOCKER [Concomitant]
     Indication: TACHYCARDIA

REACTIONS (8)
  - BLOOD PRESSURE DECREASED [None]
  - BODY TEMPERATURE DECREASED [None]
  - HYPERHIDROSIS [None]
  - NAUSEA [None]
  - NIGHTMARE [None]
  - VISUAL ACUITY REDUCED [None]
  - VOMITING [None]
  - WITHDRAWAL SYNDROME [None]
